FAERS Safety Report 17287470 (Version 1)
Quarter: 2020Q1

REPORT INFORMATION
  Report Type: Spontaneous
  Country: GB (occurrence: GB)
  Receive Date: 20200120
  Receipt Date: 20200120
  Transmission Date: 20200409
  Serious: Yes (Other)
  Sender: FDA-Public Use
  Company Number: GB-TEVA-2020-GB-1169644

PATIENT
  Age: 26 Year
  Sex: Male

DRUGS (7)
  1. IBUPROFEN. [Suspect]
     Active Substance: IBUPROFEN
     Indication: PAIN
     Dosage: 400 MG
     Route: 048
     Dates: start: 20191217, end: 20191217
  2. MELATONIN [Concomitant]
     Active Substance: MELATONIN
  3. AMITRIPTYLINE [Concomitant]
     Active Substance: AMITRIPTYLINE
  4. PROPOFOL. [Concomitant]
     Active Substance: PROPOFOL
  5. PROPOFOL. [Concomitant]
     Active Substance: PROPOFOL
  6. CLONIDINE. [Concomitant]
     Active Substance: CLONIDINE
  7. GABAPENTIN. [Concomitant]
     Active Substance: GABAPENTIN

REACTIONS (4)
  - Pallor [Recovered/Resolved]
  - Urticaria [Recovered/Resolved]
  - Erythema [Recovered/Resolved]
  - Flushing [Recovered/Resolved]

NARRATIVE: CASE EVENT DATE: 20191217
